FAERS Safety Report 24399321 (Version 2)
Quarter: 2025Q3

REPORT INFORMATION
  Report Type: Spontaneous
  Country: JP (occurrence: JP)
  Receive Date: 20241004
  Receipt Date: 20250809
  Transmission Date: 20251021
  Serious: Yes (Other)
  Sender: ALEXION PHARMACEUTICALS
  Company Number: JP-ASTRAZENECA-240104988_063010_P_1

PATIENT
  Age: 88 Year
  Sex: Male

DRUGS (1)
  1. DAPAGLIFLOZIN [Suspect]
     Active Substance: DAPAGLIFLOZIN
     Indication: Cardiac failure chronic

REACTIONS (5)
  - Cerebral infarction [Unknown]
  - Decreased appetite [Unknown]
  - Weight decreased [Unknown]
  - Cardiac function test abnormal [Unknown]
  - Fall [Unknown]

NARRATIVE: CASE EVENT DATE: 20240901
